FAERS Safety Report 11044909 (Version 1)
Quarter: 2015Q2

REPORT INFORMATION
  Report Type: Spontaneous
  Country: US (occurrence: US)
  Receive Date: 20150417
  Receipt Date: 20150417
  Transmission Date: 20150821
  Serious: Yes (Hospitalization, Other)
  Sender: FDA-Public Use
  Company Number: US-GLAXOSMITHKLINE-US2015GSK052358

PATIENT
  Age: 42 Year
  Sex: Female

DRUGS (2)
  1. SUMATRIPTAN. [Suspect]
     Active Substance: SUMATRIPTAN
     Dosage: 6 MG, UNK
     Route: 058
  2. HYDROCODONE/ACETAMINOPHEN [Concomitant]
     Active Substance: ACETAMINOPHEN\HYDROCODONE
     Indication: MIGRAINE

REACTIONS (25)
  - Sinus tachycardia [Unknown]
  - Hypoxia [Unknown]
  - Ventricular fibrillation [Unknown]
  - Muscle rigidity [Unknown]
  - Supraventricular tachycardia [Unknown]
  - Hyperthyroidism [Unknown]
  - Pneumonia [Unknown]
  - Blood pressure increased [Unknown]
  - Gaze palsy [Unknown]
  - Atrial flutter [Unknown]
  - Ventricular hypertrophy [Unknown]
  - Hypotension [Unknown]
  - Atrioventricular block complete [Unknown]
  - Torsade de pointes [Unknown]
  - Cardiac failure congestive [Unknown]
  - Pulmonary oedema [Unknown]
  - Brain natriuretic peptide increased [Unknown]
  - Torticollis [Unknown]
  - Cardiac arrest [Unknown]
  - Dysarthria [Unknown]
  - Ill-defined disorder [Unknown]
  - Dyspnoea [Unknown]
  - Respiratory distress [Unknown]
  - Lethargy [Unknown]
  - Drooling [Unknown]
